FAERS Safety Report 6960585-8 (Version None)
Quarter: 2010Q3

REPORT INFORMATION
  Report Type: 
  Country: None (occurrence: None)
  Receive Date: 20100901
  Receipt Date: 20100823
  Transmission Date: 20110219
  Serious: Yes (Other)
  Sender: FDA-Public Use
  Company Number: US-PFIZER INC-2010086796

PATIENT
  Sex: Male
  Weight: 59 kg

DRUGS (18)
  1. ZITHROMAX [Suspect]
     Indication: HORDEOLUM
     Dosage: 250 MG, 2X/DAY
     Route: 048
     Dates: start: 20100706, end: 20100707
  2. ZITHROMAX [Suspect]
     Dosage: 250 MG, 1X/DAY
     Route: 048
     Dates: start: 20100707, end: 20100707
  3. COSOPT [Concomitant]
     Indication: GLAUCOMA
     Dosage: UNK
     Route: 047
     Dates: start: 20020101
  4. PRESERVISION SOFTGELS WITH LUTEIN [Concomitant]
     Indication: GLAUCOMA
     Dosage: UNK
     Dates: start: 20020101
  5. ACETYLSALICYLIC ACID [Concomitant]
     Indication: CARDIAC DISORDER
     Dosage: 81 MG, 1X/DAY
     Dates: start: 20020101
  6. AVAPRO [Concomitant]
     Indication: HYPERTENSION
     Dosage: UNK
  7. TAMSULOSIN HYDROCHLORIDE [Concomitant]
     Dosage: UNK
  8. METFORMIN [Concomitant]
     Indication: TYPE 2 DIABETES MELLITUS
     Dosage: UNK
  9. TRIOBE [Concomitant]
     Indication: DIABETIC NEUROPATHY
     Dosage: UNK
  10. METROGEL [Concomitant]
     Indication: ROSACEA
     Dosage: UNK
  11. PLAVIX [Concomitant]
     Dosage: UNK
  12. POTASSIUM [Concomitant]
     Dosage: UNK
  13. PROTONIX [Concomitant]
     Dosage: UNK
  14. DOCUSATE [Concomitant]
     Indication: CONSTIPATION
     Dosage: UNK
  15. TOPROL-XL [Concomitant]
     Indication: ANGINA PECTORIS
     Dosage: UNK
  16. TOPROL-XL [Concomitant]
     Indication: HYPERTENSION
  17. VITAMIN D [Concomitant]
     Dosage: UNK
  18. ZOCOR [Concomitant]
     Dosage: UNK

REACTIONS (2)
  - DIARRHOEA [None]
  - DYSPNOEA [None]
